FAERS Safety Report 8339944-7 (Version None)
Quarter: 2012Q2

REPORT INFORMATION
  Report Type: 
  Country: None (occurrence: None)
  Receive Date: 20120502
  Receipt Date: 20120502
  Transmission Date: 20120825
  Serious: Yes (Hospitalization, Other)
  Sender: FDA-Public Use
  Company Number: None

PATIENT
  Sex: Male

DRUGS (1)
  1. LEVETIRACETAM [Suspect]
     Indication: GRAND MAL CONVULSION
     Dosage: 250MG TWICE A DAY ORAL
     Route: 048
     Dates: start: 20120301

REACTIONS (3)
  - LOSS OF CONSCIOUSNESS [None]
  - EMOTIONAL DISORDER [None]
  - CONVULSION [None]
